FAERS Safety Report 8528477-0 (Version None)
Quarter: 2012Q3

REPORT INFORMATION
  Report Type: 
  Country: None (occurrence: None)
  Receive Date: 20120723
  Receipt Date: 20120717
  Transmission Date: 20120928
  Serious: Yes (Other)
  Sender: FDA-Public Use
  Company Number: US-AMGEN-USASP2012044751

PATIENT
  Age: 74 Year
  Sex: Male

DRUGS (6)
  1. XGEVA [Suspect]
     Indication: PROSTATE CANCER METASTATIC
  2. GLUCOPHAGE [Concomitant]
  3. ZOLOFT [Concomitant]
  4. LIPITOR [Concomitant]
  5. VANTAS [Concomitant]
  6. XGEVA [Suspect]
     Indication: PROPHYLAXIS

REACTIONS (2)
  - TOOTH INFECTION [None]
  - OSTEONECROSIS OF JAW [None]
